FAERS Safety Report 4782779-2 (Version None)
Quarter: 2005Q3

REPORT INFORMATION
  Report Type: 
  Country: None (occurrence: None)
  Receive Date: 20050929
  Receipt Date: 20050916
  Transmission Date: 20060218
  Serious: Yes (Other)
  Sender: FDA-Public Use
  Company Number: PHBS2005ZA13699

PATIENT
  Age: 58 Year
  Sex: Male
  Weight: 90 kg

DRUGS (7)
  1. SANDOSTATIN LAR [Suspect]
     Indication: CARCINOID SYNDROME
     Dosage: 20 MG, QMO
     Route: 030
  2. MORPHINE [Concomitant]
  3. DEPURAN [Concomitant]
  4. XEFO [Concomitant]
  5. SEREPAX [Concomitant]
  6. MEDROL [Concomitant]
  7. MAXOLON [Concomitant]

REACTIONS (2)
  - FAT NECROSIS [None]
  - LYMPHOEDEMA [None]
